FAERS Safety Report 18408427 (Version 2)
Quarter: 2020Q4

REPORT INFORMATION
  Report Type: Spontaneous
  Country: US (occurrence: US)
  Receive Date: 20201021
  Receipt Date: 20201027
  Transmission Date: 20210114
  Serious: Yes (Hospitalization, Other)
  Sender: FDA-Public Use
  Company Number: US-AUROBINDO-AUR-APL-2019-080402

PATIENT
  Age: 22 Year
  Sex: Male

DRUGS (2)
  1. CARBAMAZEPINE. [Suspect]
     Active Substance: CARBAMAZEPINE
     Indication: PRODUCT USED FOR UNKNOWN INDICATION
     Dosage: UNK
     Route: 065
  2. QUETIAPINE. [Suspect]
     Active Substance: QUETIAPINE
     Indication: PRODUCT USED FOR UNKNOWN INDICATION
     Dosage: UNK
     Route: 065

REACTIONS (10)
  - Unresponsive to stimuli [Recovering/Resolving]
  - Mucosal dryness [Recovering/Resolving]
  - Depressed level of consciousness [Recovering/Resolving]
  - Generalised tonic-clonic seizure [Recovering/Resolving]
  - Drug level increased [Recovered/Resolved]
  - Ileus paralytic [Recovering/Resolving]
  - Bowel movement irregularity [Recovered/Resolved]
  - Overdose [Recovering/Resolving]
  - Agitation [Recovering/Resolving]
  - Abdominal distension [Recovering/Resolving]
